FAERS Safety Report 7671605-X (Version None)
Quarter: 2011Q3

REPORT INFORMATION
  Report Type: 
  Country: None (occurrence: None)
  Receive Date: 20110809
  Receipt Date: 20110803
  Transmission Date: 20111222
  Serious: Yes (Other)
  Sender: FDA-Public Use
  Company Number: GB-PFIZER INC-2011178223

PATIENT

DRUGS (1)
  1. SUTENT [Suspect]

REACTIONS (1)
  - PRIAPISM [None]
